FAERS Safety Report 4698678-0 (Version None)
Quarter: 2005Q2

REPORT INFORMATION
  Report Type: 
  Country: None (occurrence: None)
  Receive Date: 20050622
  Receipt Date: 20050419
  Transmission Date: 20051028
  Serious: No
  Sender: FDA-Public Use
  Company Number: SU-2005-003455

PATIENT
  Age: 92 Year
  Sex: Female
  Weight: 69.8539 kg

DRUGS (4)
  1. BENICAR HCT [Suspect]
     Indication: HYPERTENSION
     Dosage: 20.125 MG QD PO
     Route: 048
     Dates: start: 20050329
  2. ZOCOR [Concomitant]
  3. FOSAMAX [Concomitant]
  4. PRILOSEC [Concomitant]

REACTIONS (1)
  - URINE OUTPUT DECREASED [None]
